FAERS Safety Report 24639634 (Version 2)
Quarter: 2025Q1

REPORT INFORMATION
  Report Type: Spontaneous
  Country: US (occurrence: US)
  Receive Date: 20241119
  Receipt Date: 20250102
  Transmission Date: 20250409
  Serious: No
  Sender: SUNOVION
  Company Number: US-SMPA-2024SPA005000AA

PATIENT

DRUGS (4)
  1. ORGOVYX [Suspect]
     Active Substance: RELUGOLIX
     Indication: Prostate cancer
     Dosage: 360 MG, SINGLE
     Route: 048
  2. ORGOVYX [Suspect]
     Active Substance: RELUGOLIX
     Dosage: 120 MG, QD
     Route: 048
  3. XTANDI [Concomitant]
     Active Substance: ENZALUTAMIDE
     Route: 065
  4. XGEVA [Concomitant]
     Active Substance: DENOSUMAB
     Route: 065

REACTIONS (7)
  - Vitamin D decreased [Unknown]
  - Muscular weakness [Unknown]
  - Weight increased [Recovered/Resolved]
  - Fatigue [Recovered/Resolved]
  - Red blood cell count decreased [Unknown]
  - Asthenia [Unknown]
  - Hot flush [Unknown]
